FAERS Safety Report 5280106-8 (Version None)
Quarter: 2007Q1

REPORT INFORMATION
  Report Type: 
  Country: None (occurrence: None)
  Receive Date: 20070329
  Receipt Date: 20070322
  Transmission Date: 20070707
  Serious: Yes (Other)
  Sender: FDA-Public Use
  Company Number: IT-BRISTOL-MYERS SQUIBB COMPANY-13722194

PATIENT
  Age: 13 Year
  Sex: Male

DRUGS (4)
  1. STAVUDINE [Suspect]
     Indication: HIV INFECTION
  2. METHOTREXATE [Suspect]
     Indication: NON-HODGKIN'S LYMPHOMA
  3. NEVIRAPINE [Suspect]
     Indication: HIV INFECTION
  4. NELFINAVIR [Suspect]
     Indication: HIV INFECTION

REACTIONS (5)
  - CYTOMEGALOVIRUS CHORIORETINITIS [None]
  - IMMUNE RECONSTITUTION SYNDROME [None]
  - IRIDOCYCLITIS [None]
  - NEUTROPENIA [None]
  - NON-HODGKIN'S LYMPHOMA [None]
